APPROVED DRUG PRODUCT: DICLOFENAC POTASSIUM
Active Ingredient: DICLOFENAC POTASSIUM
Strength: 25MG
Dosage Form/Route: TABLET;ORAL
Application: A215750 | Product #002 | TE Code: AB
Applicant: UMEDICA LABORATORIES PRIVATE LTD
Approved: Jun 30, 2025 | RLD: No | RS: No | Type: RX